FAERS Safety Report 6416211-X (Version None)
Quarter: 2009Q4

REPORT INFORMATION
  Report Type: 
  Country: None (occurrence: None)
  Receive Date: 20091027
  Receipt Date: 20091016
  Transmission Date: 20100525
  Serious: Yes (Hospitalization)
  Sender: FDA-Public Use
  Company Number: FR-PFIZER INC-2009284100

PATIENT
  Age: 54 Year

DRUGS (2)
  1. VFEND [Suspect]
     Indication: BRONCHOPULMONARY ASPERGILLOSIS
     Dosage: 200 MG, 2X/DAY
     Route: 048
     Dates: start: 20090925, end: 20091002
  2. BRISTOPEN [Concomitant]
     Dosage: UNK
     Dates: start: 20090925

REACTIONS (2)
  - AGGRESSION [None]
  - PERSECUTORY DELUSION [None]
